FAERS Safety Report 23531497 (Version 1)
Quarter: 2024Q1

REPORT INFORMATION
  Report Type: Spontaneous
  Country: US (occurrence: US)
  Receive Date: 20240216
  Receipt Date: 20240216
  Transmission Date: 20240410
  Serious: No
  Sender: FDA-Public Use
  Company Number: US-KARYOPHARM-2024KPT000081

PATIENT

DRUGS (20)
  1. XPOVIO [Suspect]
     Active Substance: SELINEXOR
     Indication: Plasma cell myeloma
     Dosage: 60 MG, WEEKLY
     Route: 048
     Dates: start: 20240119
  2. ZETIA [Concomitant]
     Active Substance: EZETIMIBE
  3. PROSCAR [Concomitant]
     Active Substance: FINASTERIDE
  4. LISINOPRIL [Concomitant]
     Active Substance: LISINOPRIL
  5. LORATADINE [Concomitant]
     Active Substance: LORATADINE
  6. METOPROLOL SUCCINATE [Concomitant]
     Active Substance: METOPROLOL SUCCINATE
  7. CRESTOR [Concomitant]
     Active Substance: ROSUVASTATIN CALCIUM
  8. RYBELSUS [Concomitant]
     Active Substance: SEMAGLUTIDE
  9. CIALIS [Concomitant]
     Active Substance: TADALAFIL
  10. TRAMADOL [Concomitant]
     Active Substance: TRAMADOL\TRAMADOL HYDROCHLORIDE
  11. FENTANYL [Concomitant]
     Active Substance: FENTANYL\FENTANYL CITRATE
  12. VALTREX [Concomitant]
     Active Substance: VALACYCLOVIR HYDROCHLORIDE
  13. CYCLOBENZAPRINE [Concomitant]
     Active Substance: CYCLOBENZAPRINE
  14. POMALYST [Concomitant]
     Active Substance: POMALIDOMIDE
  15. METOCLOPRAMIDE [Concomitant]
     Active Substance: METOCLOPRAMIDE
  16. ONDANSETRON [Concomitant]
     Active Substance: ONDANSETRON
  17. DEXAMETHASONE [Concomitant]
     Active Substance: DEXAMETHASONE
  18. COLACE [Concomitant]
     Active Substance: DOCUSATE SODIUM
  19. MIRALAX [Concomitant]
     Active Substance: POLYETHYLENE GLYCOL 3350
  20. ACETAMINOPHEN [Concomitant]
     Active Substance: ACETAMINOPHEN

REACTIONS (10)
  - Pain [Unknown]
  - Dysgeusia [Unknown]
  - Insomnia [Unknown]
  - Nocturia [Unknown]
  - Dizziness [Not Recovered/Not Resolved]
  - Dehydration [Unknown]
  - Constipation [Unknown]
  - Weight decreased [Not Recovered/Not Resolved]
  - Decreased appetite [Unknown]
  - Nausea [Unknown]

NARRATIVE: CASE EVENT DATE: 20240101
